FAERS Safety Report 9989472 (Version 1)
Quarter: 2014Q1

REPORT INFORMATION
  Report Type: Report from Study
  Country: US (occurrence: US)
  Receive Date: 20140310
  Receipt Date: 20140310
  Transmission Date: 20141002
  Serious: No
  Sender: FDA-Public Use
  Company Number: US-ABBVIE-13P-163-1132658-00

PATIENT
  Age: 66 Year
  Sex: Female

DRUGS (4)
  1. HUMIRA [Suspect]
     Indication: CROHN^S DISEASE
     Dates: start: 201206
  2. NEXIUM [Concomitant]
     Indication: GASTROOESOPHAGEAL REFLUX DISEASE
  3. FELODIPINE [Concomitant]
     Indication: HYPERTENSION
     Dosage: 10 MG DAILY
  4. PREDNISONE [Concomitant]
     Indication: ARTHROPATHY
     Dosage: 5 MG EVERY DAY

REACTIONS (1)
  - Skin burning sensation [Not Recovered/Not Resolved]
